FAERS Safety Report 9383056 (Version 4)
Quarter: 2013Q3

REPORT INFORMATION
  Report Type: Spontaneous
  Country: DE (occurrence: DE)
  Receive Date: 20130704
  Receipt Date: 20130819
  Transmission Date: 20140515
  Serious: Yes (Other)
  Sender: FDA-Public Use
  Company Number: DE-JNJFOC-20130619288

PATIENT
  Sex: Female

DRUGS (3)
  1. REGAINE FRAUEN [Suspect]
     Indication: ALOPECIA
     Route: 061
  2. REGAINE FRAUEN [Suspect]
     Indication: ALOPECIA
     Route: 061
  3. REGAINE FRAUEN [Suspect]
     Indication: ALOPECIA
     Route: 061
     Dates: start: 2009, end: 201301

REACTIONS (5)
  - Blood pressure decreased [Recovered/Resolved]
  - Palpitations [Recovered/Resolved]
  - Fatigue [Recovered/Resolved]
  - Inappropriate schedule of drug administration [Unknown]
  - Alopecia [Unknown]
